FAERS Safety Report 13844748 (Version 14)
Quarter: 2021Q3

REPORT INFORMATION
  Report Type: Spontaneous
  Country: US (occurrence: US)
  Receive Date: 20170808
  Receipt Date: 20210827
  Transmission Date: 20211014
  Serious: Yes (Hospitalization, Other)
  Sender: FDA-Public Use
  Company Number: US-PFIZER INC-2017340658

PATIENT
  Age: 75 Year
  Sex: Female
  Weight: 71 kg

DRUGS (9)
  1. XELJANZ XR [Suspect]
     Active Substance: TOFACITINIB CITRATE
     Indication: RHEUMATOID ARTHRITIS
     Dosage: 11 MG, 1X/DAY
     Route: 048
     Dates: start: 2015
  2. XELJANZ XR [Suspect]
     Active Substance: TOFACITINIB CITRATE
     Dosage: 11 MG, 1X/DAY
     Route: 048
  3. XELJANZ XR [Suspect]
     Active Substance: TOFACITINIB CITRATE
     Dosage: 11 MG, 1X/DAY
     Route: 048
  4. XELJANZ XR [Suspect]
     Active Substance: TOFACITINIB CITRATE
     Dosage: 11 MG, 1X/DAY
     Route: 048
  5. RESTASIS [Concomitant]
     Active Substance: CYCLOSPORINE
     Indication: SJOGREN^S SYNDROME
     Dosage: UNK
  6. XELJANZ XR [Suspect]
     Active Substance: TOFACITINIB CITRATE
     Dosage: 11 MG
  7. PREDNISONE. [Concomitant]
     Active Substance: PREDNISONE
     Dosage: UNK
  8. METHOTREXATE. [Concomitant]
     Active Substance: METHOTREXATE
     Dosage: UNK
  9. RESERPINE. [Concomitant]
     Active Substance: RESERPINE
     Dosage: UNK

REACTIONS (27)
  - Gastrointestinal disorder [Unknown]
  - Nodule [Unknown]
  - Hiatus hernia [Unknown]
  - Drug ineffective [Unknown]
  - Urinary tract infection [Unknown]
  - Gait inability [Unknown]
  - Musculoskeletal stiffness [Unknown]
  - Laboratory test abnormal [Unknown]
  - Arthritis [Unknown]
  - Immune system disorder [Unknown]
  - Inflammation [Unknown]
  - Insomnia [Unknown]
  - COVID-19 [Unknown]
  - Pain [Unknown]
  - Localised infection [Not Recovered/Not Resolved]
  - Herpes zoster [Unknown]
  - Product dose omission issue [Unknown]
  - Speech disorder [Unknown]
  - Gait disturbance [Unknown]
  - Cholecystitis acute [Recovered/Resolved]
  - Hand deformity [Not Recovered/Not Resolved]
  - SARS-CoV-2 test positive [Unknown]
  - Clostridium difficile colitis [Recovered/Resolved]
  - Clostridium difficile infection [Unknown]
  - Pain in extremity [Not Recovered/Not Resolved]
  - Lung disorder [Unknown]
  - Red blood cell sedimentation rate increased [Unknown]

NARRATIVE: CASE EVENT DATE: 201803
